FAERS Safety Report 6660392-X (Version None)
Quarter: 2010Q1

REPORT INFORMATION
  Report Type: 
  Country: None (occurrence: None)
  Receive Date: 20100330
  Receipt Date: 20100330
  Transmission Date: 20100710
  Serious: No
  Sender: FDA-Public Use
  Company Number: None

PATIENT
  Sex: Female
  Weight: 95.2554 kg

DRUGS (1)
  1. SYNTHROID [Suspect]
     Dosage: 150 MG 1 A DAY

REACTIONS (10)
  - ALOPECIA [None]
  - ARTHRALGIA [None]
  - BODY HEIGHT DECREASED [None]
  - CONSTIPATION [None]
  - DYSPHONIA [None]
  - MADAROSIS [None]
  - MYALGIA [None]
  - ONYCHOCLASIS [None]
  - SKIN EXFOLIATION [None]
  - WEIGHT INCREASED [None]
